FAERS Safety Report 5356770-1 (Version None)
Quarter: 2007Q2

REPORT INFORMATION
  Report Type: 
  Country: None (occurrence: None)
  Receive Date: 20070614
  Receipt Date: 20060815
  Transmission Date: 20071010
  Serious: No
  Sender: FDA-Public Use
  Company Number: US-ASTRAZENECA-2006UW16154

PATIENT
  Age: 65 Year
  Sex: Female

DRUGS (1)
  1. ATACAND [Suspect]

REACTIONS (1)
  - BLOOD PRESSURE INCREASED [None]
